FAERS Safety Report 7947048-8 (Version None)
Quarter: 2011Q4

REPORT INFORMATION
  Report Type: 
  Country: None (occurrence: None)
  Receive Date: 20111129
  Receipt Date: 20110816
  Transmission Date: 20120403
  Serious: No
  Sender: FDA-Public Use
  Company Number: US-ASTRAZENECA-2011SE49002

PATIENT
  Age: 81 Year
  Sex: Female

DRUGS (2)
  1. VIMOVO [Suspect]
     Indication: POLYMYALGIA RHEUMATICA
     Dosage: 500 MG/20 MG, TWO TIMES A DAY
     Route: 048
     Dates: start: 20110810, end: 20110814
  2. METHOTREXATE [Concomitant]
     Indication: POLYMYALGIA RHEUMATICA

REACTIONS (2)
  - CONSTIPATION [None]
  - MUSCULOSKELETAL PAIN [None]
